FAERS Safety Report 14523436 (Version 13)
Quarter: 2020Q1

REPORT INFORMATION
  Report Type: Spontaneous
  Country: DE (occurrence: DE)
  Receive Date: 20180212
  Receipt Date: 20200206
  Transmission Date: 20200409
  Serious: Yes (Hospitalization, Other)
  Sender: FDA-Public Use
  Company Number: DE-ASTRAZENECA-2018SE14663

PATIENT
  Age: 75 Year
  Sex: Male
  Weight: 81 kg

DRUGS (95)
  1. QUETIAPINE. [Suspect]
     Active Substance: QUETIAPINE
     Indication: PRODUCT USED FOR UNKNOWN INDICATION
     Route: 048
  2. ROACTEMRA [Suspect]
     Active Substance: TOCILIZUMAB
     Indication: VASCULITIS
     Dosage: 162 MG, UNK, EVERY 12 DAYS
     Route: 065
     Dates: start: 201506
  3. ROACTEMRA [Suspect]
     Active Substance: TOCILIZUMAB
     Indication: VASCULITIS
     Dosage: 162 MG, BID
     Route: 065
     Dates: start: 201704, end: 20171025
  4. ROACTEMRA [Suspect]
     Active Substance: TOCILIZUMAB
     Indication: MYALGIA
     Dosage: 162 MG, UNK, EVERY 12 DAYS
     Route: 065
     Dates: start: 20180414
  5. COLECALCIFEROL [Suspect]
     Active Substance: CHOLECALCIFEROL
     Indication: OSTEOPOROSIS
     Dosage: 1000 IU, UNK
     Route: 048
     Dates: start: 201204
  6. PROLIA [Suspect]
     Active Substance: DENOSUMAB
     Indication: OSTEOPOROSIS
     Route: 065
  7. TOCILIZUMAB. [Suspect]
     Active Substance: TOCILIZUMAB
     Indication: MYALGIA
     Dosage: 162 MG, EVERY 14 DAYS
     Route: 058
  8. TOCILIZUMAB. [Suspect]
     Active Substance: TOCILIZUMAB
     Indication: MYALGIA
     Dosage: 324 MG, DAILY
     Route: 058
     Dates: start: 20140601, end: 201506
  9. TOCILIZUMAB. [Suspect]
     Active Substance: TOCILIZUMAB
     Indication: RHEUMATOID ARTHRITIS
     Dosage: 162 MG, DAILY
     Route: 058
     Dates: start: 20180131
  10. AMLODIPIN [Concomitant]
     Active Substance: AMLODIPINE BESYLATE
     Indication: OFF LABEL USE
     Route: 065
  11. CLEXANE [Suspect]
     Active Substance: ENOXAPARIN SODIUM
     Indication: VENOUS THROMBOSIS LIMB
     Route: 065
  12. FRAXIPARIN [Suspect]
     Active Substance: NADROPARIN CALCIUM
     Indication: VENOUS THROMBOSIS LIMB
     Route: 065
     Dates: start: 201507
  13. ROACTEMRA [Suspect]
     Active Substance: TOCILIZUMAB
     Indication: RHEUMATOID ARTHRITIS
     Dosage: 162 MG, UNK, EVERY 12 DAYS
     Route: 065
     Dates: start: 201404
  14. ROACTEMRA [Suspect]
     Active Substance: TOCILIZUMAB
     Indication: MYALGIA
     Dosage: 162 MG, UNK, EVERY 12 DAYS
     Route: 065
     Dates: start: 201506
  15. ROACTEMRA [Suspect]
     Active Substance: TOCILIZUMAB
     Indication: RHEUMATOID ARTHRITIS
     Dosage: 162 MG, UNK, EVERY 12 DAYS
     Route: 065
     Dates: start: 201506
  16. ROACTEMRA [Suspect]
     Active Substance: TOCILIZUMAB
     Indication: MYALGIA
     Dosage: 162 MG, UNK, EVERY 12 DAYS
     Route: 065
     Dates: start: 20150706, end: 20171025
  17. ROACTEMRA [Suspect]
     Active Substance: TOCILIZUMAB
     Indication: RHEUMATOID ARTHRITIS
     Dosage: 162 MG, BID
     Route: 065
     Dates: start: 201704, end: 20171025
  18. ROACTEMRA [Suspect]
     Active Substance: TOCILIZUMAB
     Indication: VASCULITIS
     Dosage: 162 MG, BID
     Route: 065
     Dates: start: 20180131
  19. ROACTEMRA [Suspect]
     Active Substance: TOCILIZUMAB
     Indication: MYALGIA
     Dosage: 162 MG, BID
     Route: 065
     Dates: start: 20180131
  20. TOCILIZUMAB. [Suspect]
     Active Substance: TOCILIZUMAB
     Indication: RHEUMATOID ARTHRITIS
     Dosage: 324 MG ONCE A DAY
     Route: 058
     Dates: start: 20140601, end: 201506
  21. TOCILIZUMAB. [Suspect]
     Active Substance: TOCILIZUMAB
     Indication: VASCULITIS
     Dosage: 324 MG, DAILY
     Route: 058
     Dates: start: 20140601, end: 201506
  22. TOCILIZUMAB. [Suspect]
     Active Substance: TOCILIZUMAB
     Indication: MYALGIA
     Dosage: 162 MG, UNK, EVERY 14 DAYS
     Route: 058
     Dates: start: 201704, end: 20171025
  23. TOCILIZUMAB. [Suspect]
     Active Substance: TOCILIZUMAB
     Indication: VASCULITIS
     Dosage: 162 MG, UNK, EVERY 10 DAYS
     Route: 058
     Dates: start: 20180414
  24. TOCILIZUMAB. [Suspect]
     Active Substance: TOCILIZUMAB
     Indication: RHEUMATOID ARTHRITIS
     Dosage: 162 MG EVERY THREE WEEKS
     Route: 058
     Dates: start: 201811
  25. TOCILIZUMAB. [Suspect]
     Active Substance: TOCILIZUMAB
     Indication: MYALGIA
     Dosage: 162 MG EVERY 7 DAYS
     Route: 058
     Dates: start: 20190227, end: 20190327
  26. NADROPARINE [Suspect]
     Active Substance: NADROPARIN
     Indication: OFF LABEL USE
     Dosage: UNK
     Route: 065
  27. QUETIAPINE. [Suspect]
     Active Substance: QUETIAPINE
     Indication: OFF LABEL USE
     Route: 048
  28. ROACTEMRA [Suspect]
     Active Substance: TOCILIZUMAB
     Indication: VASCULITIS
     Dosage: 162 MG, UNK, EVERY 12 DAYS
     Route: 065
     Dates: start: 201404
  29. ROACTEMRA [Suspect]
     Active Substance: TOCILIZUMAB
     Indication: VASCULITIS
     Dosage: 162 MG, UNK, EVERY 12 DAYS
     Route: 065
     Dates: start: 20180414
  30. PROLIA [Suspect]
     Active Substance: DENOSUMAB
     Indication: OSTEOPOROSIS
     Route: 065
     Dates: start: 201405
  31. TOCILIZUMAB. [Suspect]
     Active Substance: TOCILIZUMAB
     Indication: VASCULITIS
     Dosage: 162 MG, EVERY 14 DAYS
     Route: 058
  32. TOCILIZUMAB. [Suspect]
     Active Substance: TOCILIZUMAB
     Indication: RHEUMATOID ARTHRITIS
     Dosage: 324 MG, DAILY
     Route: 058
     Dates: start: 20140601, end: 201506
  33. TOCILIZUMAB. [Suspect]
     Active Substance: TOCILIZUMAB
     Indication: RHEUMATOID ARTHRITIS
     Dosage: 162 MG, UNK, EVERY 14 DAYS
     Route: 058
     Dates: start: 201704, end: 20171025
  34. TOCILIZUMAB. [Suspect]
     Active Substance: TOCILIZUMAB
     Indication: MYALGIA
     Dosage: 162 MG, UNK, EVERY 10 DAYS
     Route: 058
     Dates: start: 20180414
  35. TOCILIZUMAB. [Suspect]
     Active Substance: TOCILIZUMAB
     Indication: TEMPORAL ARTERITIS
     Dosage: 162 MG EVERY 14 DAYS
     Route: 058
     Dates: start: 20180414
  36. TOCILIZUMAB. [Suspect]
     Active Substance: TOCILIZUMAB
     Indication: TEMPORAL ARTERITIS
     Dosage: 162 MG EVERY THREE WEEKS
     Route: 058
     Dates: start: 201811
  37. TOCILIZUMAB. [Suspect]
     Active Substance: TOCILIZUMAB
     Indication: RHEUMATOID ARTHRITIS
     Dosage: 162 MG, DAILY
     Route: 058
     Dates: start: 201904
  38. TOCILIZUMAB. [Suspect]
     Active Substance: TOCILIZUMAB
     Indication: TEMPORAL ARTERITIS
     Dosage: 162 MG, DAILY
     Route: 058
     Dates: start: 201904
  39. ESCITALOPRAM [Concomitant]
     Active Substance: ESCITALOPRAM OXALATE
     Indication: PRODUCT USED FOR UNKNOWN INDICATION
     Dosage: 10 DROPS DAILY
     Route: 048
  40. LISIHEXAL [Concomitant]
     Active Substance: LISINOPRIL
     Indication: PRODUCT USED FOR UNKNOWN INDICATION
     Dosage: 20.0MG UNKNOWN
     Route: 065
  41. ROACTEMRA [Suspect]
     Active Substance: TOCILIZUMAB
     Indication: MYALGIA
     Dosage: 162 MG, BID
     Route: 065
     Dates: start: 201704, end: 20171025
  42. PROLIA [Suspect]
     Active Substance: DENOSUMAB
     Indication: OFF LABEL USE
     Route: 065
     Dates: start: 201405
  43. TOCILIZUMAB. [Suspect]
     Active Substance: TOCILIZUMAB
     Indication: TEMPORAL ARTERITIS
     Dosage: 324 MG ONCE A DAY
     Route: 058
     Dates: start: 20140601, end: 201506
  44. TOCILIZUMAB. [Suspect]
     Active Substance: TOCILIZUMAB
     Indication: MYALGIA
     Dosage: 324 MG EVERY 12 DAYS
     Route: 058
     Dates: start: 20150706, end: 20171025
  45. TOCILIZUMAB. [Suspect]
     Active Substance: TOCILIZUMAB
     Indication: VASCULITIS
     Dosage: 324 MG EVERY 12 DAYS
     Route: 058
     Dates: start: 20150706, end: 20171025
  46. TOCILIZUMAB. [Suspect]
     Active Substance: TOCILIZUMAB
     Indication: VASCULITIS
     Dosage: 162 MG, UNK, EVERY 14 DAYS
     Route: 058
     Dates: start: 201704, end: 20171025
  47. TOCILIZUMAB. [Suspect]
     Active Substance: TOCILIZUMAB
     Indication: MYALGIA
     Dosage: 162 MG EVERY THREE WEEKS
     Route: 058
     Dates: start: 201811
  48. FRAXIPARIN [Suspect]
     Active Substance: NADROPARIN CALCIUM
     Indication: OFF LABEL USE
     Route: 065
     Dates: start: 201507
  49. ROACTEMRA [Suspect]
     Active Substance: TOCILIZUMAB
     Indication: VASCULITIS
     Dosage: 162 MG, UNK, EVERY 12 DAYS
     Route: 065
     Dates: start: 201506
  50. ROACTEMRA [Suspect]
     Active Substance: TOCILIZUMAB
     Indication: RHEUMATOID ARTHRITIS
     Dosage: 162 MG, UNK, EVERY 12 DAYS
     Route: 065
     Dates: start: 20150706, end: 20171025
  51. ROACTEMRA [Suspect]
     Active Substance: TOCILIZUMAB
     Indication: RHEUMATOID ARTHRITIS
     Dosage: 162 MG, BID
     Route: 065
     Dates: start: 20180131
  52. TOCILIZUMAB. [Suspect]
     Active Substance: TOCILIZUMAB
     Indication: VASCULITIS
     Dosage: 324 MG ONCE A DAY
     Route: 058
     Dates: start: 20140601, end: 201506
  53. TOCILIZUMAB. [Suspect]
     Active Substance: TOCILIZUMAB
     Indication: TEMPORAL ARTERITIS
     Dosage: 162 MG, UNK, EVERY 14 DAYS
     Route: 058
     Dates: start: 201704, end: 20171025
  54. TOCILIZUMAB. [Suspect]
     Active Substance: TOCILIZUMAB
     Indication: MYALGIA
     Dosage: 162 MG, DAILY
     Route: 058
     Dates: start: 20180131
  55. TOCILIZUMAB. [Suspect]
     Active Substance: TOCILIZUMAB
     Indication: RHEUMATOID ARTHRITIS
     Dosage: 162 MG EVERY 14 DAYS
     Route: 058
     Dates: start: 20180414
  56. NADROPARINE [Suspect]
     Active Substance: NADROPARIN
     Indication: VENOUS THROMBOSIS LIMB
     Dosage: UNK
     Route: 065
  57. PANTOPRAZOLE [Concomitant]
     Active Substance: PANTOPRAZOLE
     Indication: PRODUCT USED FOR UNKNOWN INDICATION
  58. ESCITALOPRAM [Concomitant]
     Active Substance: ESCITALOPRAM OXALATE
     Indication: PRODUCT USED FOR UNKNOWN INDICATION
     Dosage: 5 DROPS
     Route: 048
  59. ESCITALOPRAM [Concomitant]
     Active Substance: ESCITALOPRAM OXALATE
     Indication: PRODUCT USED FOR UNKNOWN INDICATION
     Dosage: 8 DROPS
     Route: 048
  60. CORTISONE ACETATE. [Concomitant]
     Active Substance: CORTISONE ACETATE
     Indication: PRODUCT USED FOR UNKNOWN INDICATION
     Dosage: 10 MG
  61. ROACTEMRA [Suspect]
     Active Substance: TOCILIZUMAB
     Indication: MYALGIA
     Dosage: 162 MG, UNK, EVERY 12 DAYS
     Route: 065
     Dates: start: 201404
  62. PROLIA [Suspect]
     Active Substance: DENOSUMAB
     Indication: OFF LABEL USE
     Route: 065
  63. TOCILIZUMAB. [Suspect]
     Active Substance: TOCILIZUMAB
     Indication: TEMPORAL ARTERITIS
     Dosage: 162 MG, EVERY 14 DAYS
     Route: 058
  64. TOCILIZUMAB. [Suspect]
     Active Substance: TOCILIZUMAB
     Indication: TEMPORAL ARTERITIS
     Dosage: 162 MG, DAILY
     Route: 058
     Dates: start: 20180131
  65. TOCILIZUMAB. [Suspect]
     Active Substance: TOCILIZUMAB
     Indication: TEMPORAL ARTERITIS
     Dosage: 162 MG, UNK, EVERY 10 DAYS
     Route: 058
     Dates: start: 20180414
  66. TOCILIZUMAB. [Suspect]
     Active Substance: TOCILIZUMAB
     Indication: VASCULITIS
     Dosage: 162 MG EVERY 14 DAYS
     Route: 058
     Dates: start: 20180414
  67. TOCILIZUMAB. [Suspect]
     Active Substance: TOCILIZUMAB
     Indication: VASCULITIS
     Dosage: 162 MG EVERY 7 DAYS
     Route: 058
     Dates: start: 20190227, end: 20190327
  68. TOCILIZUMAB. [Suspect]
     Active Substance: TOCILIZUMAB
     Indication: TEMPORAL ARTERITIS
     Dosage: 162 MG EVERY 7 DAYS
     Route: 058
     Dates: start: 20190227, end: 20190327
  69. TOCILIZUMAB. [Suspect]
     Active Substance: TOCILIZUMAB
     Indication: MYALGIA
     Dosage: 162 MG EVERY 9 DAYS
     Route: 058
     Dates: start: 20190328, end: 20190404
  70. TOCILIZUMAB. [Suspect]
     Active Substance: TOCILIZUMAB
     Indication: VASCULITIS
     Dosage: 162 MG EVERY 9 DAYS
     Route: 058
     Dates: start: 20190328, end: 20190404
  71. TOCILIZUMAB. [Suspect]
     Active Substance: TOCILIZUMAB
     Indication: RHEUMATOID ARTHRITIS
     Dosage: 162 MG EVERY 9 DAYS
     Route: 058
     Dates: start: 20190328, end: 20190404
  72. TOCILIZUMAB. [Suspect]
     Active Substance: TOCILIZUMAB
     Indication: MYALGIA
     Dosage: 162 MG, DAILY
     Route: 058
     Dates: start: 201904
  73. AMLODIPIN [Concomitant]
     Active Substance: AMLODIPINE BESYLATE
     Indication: OFF LABEL USE
     Route: 065
  74. CLEXANE [Suspect]
     Active Substance: ENOXAPARIN SODIUM
     Indication: VENOUS THROMBOSIS LIMB
     Route: 065
     Dates: start: 201507
  75. CLEXANE [Suspect]
     Active Substance: ENOXAPARIN SODIUM
     Indication: OFF LABEL USE
     Route: 065
     Dates: start: 201507
  76. FRAXIPARIN [Suspect]
     Active Substance: NADROPARIN CALCIUM
     Indication: VENOUS THROMBOSIS LIMB
     Route: 065
  77. ROACTEMRA [Suspect]
     Active Substance: TOCILIZUMAB
     Indication: RHEUMATOID ARTHRITIS
     Dosage: 162 MG, UNK, EVERY 12 DAYS
     Route: 065
     Dates: start: 201506
  78. ROACTEMRA [Suspect]
     Active Substance: TOCILIZUMAB
     Indication: MYALGIA
     Dosage: 162 MG, UNK, EVERY 12 DAYS
     Route: 065
     Dates: start: 201506
  79. ROACTEMRA [Suspect]
     Active Substance: TOCILIZUMAB
     Indication: VASCULITIS
     Dosage: 162 MG, UNK, EVERY 12 DAYS
     Route: 065
     Dates: start: 20150706, end: 20171025
  80. ROACTEMRA [Suspect]
     Active Substance: TOCILIZUMAB
     Indication: RHEUMATOID ARTHRITIS
     Dosage: 162 MG, UNK, EVERY 12 DAYS
     Route: 065
     Dates: start: 20180414
  81. COLECALCIFEROL [Suspect]
     Active Substance: CHOLECALCIFEROL
     Indication: OFF LABEL USE
     Dosage: 1000 IU, UNK
     Route: 048
     Dates: start: 201204
  82. TOCILIZUMAB. [Suspect]
     Active Substance: TOCILIZUMAB
     Indication: RHEUMATOID ARTHRITIS
     Dosage: 162 MG, EVERY 14 DAYS
     Route: 058
  83. TOCILIZUMAB. [Suspect]
     Active Substance: TOCILIZUMAB
     Indication: TEMPORAL ARTERITIS
     Dosage: 324 MG EVERY 12 DAYS
     Route: 058
     Dates: start: 20150706, end: 20171025
  84. TOCILIZUMAB. [Suspect]
     Active Substance: TOCILIZUMAB
     Indication: RHEUMATOID ARTHRITIS
     Dosage: 162 MG, UNK, EVERY 10 DAYS
     Route: 058
     Dates: start: 20180414
  85. TOCILIZUMAB. [Suspect]
     Active Substance: TOCILIZUMAB
     Indication: RHEUMATOID ARTHRITIS
     Dosage: 162 MG EVERY 7 DAYS
     Route: 058
     Dates: start: 20190227, end: 20190327
  86. CLEXANE [Suspect]
     Active Substance: ENOXAPARIN SODIUM
     Indication: OFF LABEL USE
     Route: 065
  87. FRAXIPARIN [Suspect]
     Active Substance: NADROPARIN CALCIUM
     Indication: OFF LABEL USE
     Route: 065
  88. TOCILIZUMAB. [Suspect]
     Active Substance: TOCILIZUMAB
     Indication: MYALGIA
     Dosage: 324 MG ONCE A DAY
     Route: 058
     Dates: start: 20140601, end: 201506
  89. TOCILIZUMAB. [Suspect]
     Active Substance: TOCILIZUMAB
     Indication: TEMPORAL ARTERITIS
     Dosage: 324 MG, DAILY
     Route: 058
     Dates: start: 20140601, end: 201506
  90. TOCILIZUMAB. [Suspect]
     Active Substance: TOCILIZUMAB
     Indication: RHEUMATOID ARTHRITIS
     Dosage: 324 MG EVERY 12 DAYS
     Route: 058
     Dates: start: 20150706, end: 20171025
  91. TOCILIZUMAB. [Suspect]
     Active Substance: TOCILIZUMAB
     Indication: VASCULITIS
     Dosage: 162 MG, DAILY
     Route: 058
     Dates: start: 20180131
  92. TOCILIZUMAB. [Suspect]
     Active Substance: TOCILIZUMAB
     Indication: MYALGIA
     Dosage: 162 MG EVERY 14 DAYS
     Route: 058
     Dates: start: 20180414
  93. TOCILIZUMAB. [Suspect]
     Active Substance: TOCILIZUMAB
     Indication: VASCULITIS
     Dosage: 162 MG EVERY THREE WEEKS
     Route: 058
     Dates: start: 201811
  94. TOCILIZUMAB. [Suspect]
     Active Substance: TOCILIZUMAB
     Indication: TEMPORAL ARTERITIS
     Dosage: 162 MG EVERY 9 DAYS
     Route: 058
     Dates: start: 20190328, end: 20190404
  95. TOCILIZUMAB. [Suspect]
     Active Substance: TOCILIZUMAB
     Indication: VASCULITIS
     Dosage: 162 MG, DAILY
     Route: 058
     Dates: start: 201904

REACTIONS (27)
  - Inappropriate schedule of product administration [Unknown]
  - Sepsis [Recovering/Resolving]
  - Wound dehiscence [Recovered/Resolved]
  - Lymphoedema [Recovered/Resolved]
  - Off label use [Unknown]
  - Product use in unapproved indication [Unknown]
  - Depression [Not Recovered/Not Resolved]
  - Fall [Unknown]
  - Rash erythematous [Unknown]
  - Hyperaesthesia [Unknown]
  - Lymphocele [Recovered/Resolved]
  - C-reactive protein increased [Recovering/Resolving]
  - Venous thrombosis limb [Not Recovered/Not Resolved]
  - Acetabulum fracture [Recovering/Resolving]
  - Eye inflammation [Not Recovered/Not Resolved]
  - Platelet count decreased [Unknown]
  - Angioedema [Recovered/Resolved]
  - Impaired healing [Recovered/Resolved]
  - Suture rupture [Recovered/Resolved]
  - Dysuria [Unknown]
  - Soft tissue disorder [Recovered/Resolved]
  - Prostate cancer [Recovered/Resolved]
  - Bronchitis [Recovered/Resolved]
  - Leukopenia [Recovered/Resolved]
  - Sleep disorder [Unknown]
  - Autoimmune disorder [Unknown]
  - Erysipelas [Recovering/Resolving]

NARRATIVE: CASE EVENT DATE: 201407
